FAERS Safety Report 5812723-8 (Version None)
Quarter: 2008Q3

REPORT INFORMATION
  Report Type: 
  Country: None (occurrence: None)
  Receive Date: 20080711
  Receipt Date: 20080703
  Transmission Date: 20090109
  Serious: Yes (Hospitalization)
  Sender: FDA-Public Use
  Company Number: 163-21880-08040598

PATIENT
  Age: 81 Year
  Sex: Male

DRUGS (4)
  1. REVLIMID [Suspect]
     Indication: MULTIPLE MYELOMA
     Dosage: 25 MG, 1 IN 1 D, ORAL
     Route: 048
     Dates: start: 20080220
  2. DECADRON [Concomitant]
  3. VELCADE [Concomitant]
  4. METFORMIN HCL [Concomitant]

REACTIONS (3)
  - ANAEMIA [None]
  - DIVERTICULAR PERFORATION [None]
  - WEIGHT DECREASED [None]
